FAERS Safety Report 13580949 (Version 15)
Quarter: 2017Q4

REPORT INFORMATION
  Report Type: Spontaneous
  Country: US (occurrence: US)
  Receive Date: 20170525
  Receipt Date: 20171214
  Transmission Date: 20180320
  Serious: Yes (Other)
  Sender: FDA-Public Use
  Company Number: US-PFIZER INC-2017225043

PATIENT
  Age: 59 Year
  Sex: Male
  Weight: 85 kg

DRUGS (15)
  1. BYSTOLIC [Interacting]
     Active Substance: NEBIVOLOL HYDROCHLORIDE
     Indication: PERSONALITY DISORDER
     Dosage: 10 MG HALF A TABLET ONCE DAILY
     Dates: start: 201705
  2. METOPROLOL. [Concomitant]
     Active Substance: METOPROLOL
     Indication: HEART RATE IRREGULAR
     Dosage: 75 MG, 2X/DAY
     Route: 048
  3. COUMADIN [Concomitant]
     Active Substance: WARFARIN SODIUM
     Dosage: 5 MG ONE TABLET MWF AND HALF TABLET TUES, THUR, SAT, SUN
     Dates: start: 2004
  4. BYSTOLIC [Interacting]
     Active Substance: NEBIVOLOL HYDROCHLORIDE
     Dosage: 5 MG, NOT SURE IF IT WAS TWICE A DAY OR ONCE A DAY
  5. METOPROLOL. [Concomitant]
     Active Substance: METOPROLOL
     Indication: HYPERTENSION
     Dosage: 175 MG, 1X/DAY
     Dates: start: 1992, end: 201705
  6. DILTIAZEM. [Concomitant]
     Active Substance: DILTIAZEM
     Indication: BLOOD PRESSURE MEASUREMENT
     Dosage: UNK
     Dates: start: 2000
  7. COUMADIN [Concomitant]
     Active Substance: WARFARIN SODIUM
     Indication: ATRIAL FIBRILLATION
     Dosage: 5 MG ONE TABLET MWF AND HALF TABLET TUES, THUR, SAT, SUN
     Dates: start: 2004
  8. WARFARIN [Concomitant]
     Active Substance: WARFARIN
     Indication: ATRIAL FIBRILLATION
     Dosage: UNK
     Dates: start: 2000
  9. BYSTOLIC [Interacting]
     Active Substance: NEBIVOLOL HYDROCHLORIDE
     Dosage: UNK
     Dates: start: 2017
  10. METOPROLOL. [Concomitant]
     Active Substance: METOPROLOL
     Dosage: 100 MG, 2X/DAY
     Route: 048
  11. DILTIAZEM. [Concomitant]
     Active Substance: DILTIAZEM
     Indication: HYPERTENSION
     Dosage: 300 MG, 1X/DAY [360ER ONCE A DAY]
     Route: 048
  12. VIAGRA [Interacting]
     Active Substance: SILDENAFIL CITRATE
     Dosage: 100 MG, AS NEEDED (ONE TABLET AS REQUIRED, NOT DAILY)
  13. CIALIS [Concomitant]
     Active Substance: TADALAFIL
     Indication: ERECTILE DYSFUNCTION
     Dosage: 20 MG, AS NEEDED
  14. VIAGRA [Suspect]
     Active Substance: SILDENAFIL CITRATE
     Indication: ERECTILE DYSFUNCTION
     Dosage: 100 MG, AS NEEDED (ONCE PER NEEDED OCCASION) (AS REQD) (OFF AND ON FOR 20-25 YEARS)
     Route: 048
     Dates: start: 1996, end: 201705
  15. WARFARIN [Concomitant]
     Active Substance: WARFARIN
     Indication: ANTICOAGULANT THERAPY
     Dosage: UNK, AS NEEDED [AS REQURIED TO KEEP HIS INR TO MEET 2-3]

REACTIONS (5)
  - Macular oedema [Recovered/Resolved]
  - Cyanopsia [Recovered/Resolved]
  - Retinal vascular occlusion [Recovered/Resolved]
  - Drug interaction [Not Recovered/Not Resolved]
  - Drug ineffective [Not Recovered/Not Resolved]

NARRATIVE: CASE EVENT DATE: 1996
